FAERS Safety Report 17101880 (Version 9)
Quarter: 2022Q2

REPORT INFORMATION
  Report Type: Spontaneous
  Country: US (occurrence: US)
  Receive Date: 20191202
  Receipt Date: 20220401
  Transmission Date: 20220720
  Serious: Yes (Other)
  Sender: FDA-Public Use
  Company Number: US-PFIZER INC-2016587489

PATIENT
  Age: 74 Year
  Sex: Male

DRUGS (7)
  1. TOVIAZ [Suspect]
     Active Substance: FESOTERODINE FUMARATE
     Indication: Benign prostatic hyperplasia
     Dosage: 8 MG, DAILY
     Route: 048
  2. TOVIAZ [Suspect]
     Active Substance: FESOTERODINE FUMARATE
     Indication: Lower urinary tract symptoms
     Dosage: 4 MG, DAILY
     Route: 048
  3. TOVIAZ [Suspect]
     Active Substance: FESOTERODINE FUMARATE
     Indication: Pollakiuria
     Dosage: 2 MG, 2X/DAY
     Route: 048
  4. TOVIAZ [Suspect]
     Active Substance: FESOTERODINE FUMARATE
     Dosage: 2 MG, 1X/DAY (CUTS IN TWO THE 4 MG TABLET AND JUST TAKES 2 MG ONCE A DAY IN THE MORNING)
     Route: 048
  5. TOVIAZ [Suspect]
     Active Substance: FESOTERODINE FUMARATE
     Dosage: 2 MG, 2X/DAY (CUTS IN TWO THE 4 MG TABLET AND TAKES 1/2 IN MORNING AND 1/2 IN THE EVENING)
     Route: 048
  6. TOVIAZ [Suspect]
     Active Substance: FESOTERODINE FUMARATE
     Dosage: 4 MG, DAILY
     Route: 048
     Dates: start: 20220322
  7. ASPIRIN [Concomitant]
     Active Substance: ASPIRIN
     Indication: Cerebrovascular accident prophylaxis
     Dosage: UNK

REACTIONS (14)
  - Hip fracture [Unknown]
  - Urinary retention [Unknown]
  - Lung disorder [Unknown]
  - Nervous system disorder [Unknown]
  - Muscle tightness [Unknown]
  - Bladder dysfunction [Unknown]
  - Arthralgia [Unknown]
  - Pain [Unknown]
  - Back pain [Unknown]
  - Myalgia [Unknown]
  - Drug ineffective for unapproved indication [Unknown]
  - Off label use [Unknown]
  - Wrong technique in product usage process [Unknown]
  - Intentional product use issue [Unknown]
